FAERS Safety Report 17879858 (Version 1)
Quarter: 2020Q2

REPORT INFORMATION
  Report Type: Spontaneous
  Country: US (occurrence: US)
  Receive Date: 20200610
  Receipt Date: 20200610
  Transmission Date: 20200714
  Serious: No
  Sender: FDA-Public Use
  Company Number: US-PFIZER INC-2020225647

PATIENT

DRUGS (4)
  1. LEVOXYL [Suspect]
     Active Substance: LEVOTHYROXINE SODIUM
     Dosage: UNK (75 (MCG) AND 88 (MCG) TO CUT THEM IN HALF)
  2. LEVOXYL [Suspect]
     Active Substance: LEVOTHYROXINE SODIUM
     Dosage: 81 UG ( HAVE TO CUT THEM IN HALF)
  3. LEVOXYL [Suspect]
     Active Substance: LEVOTHYROXINE SODIUM
     Dosage: 88 UG
  4. LEVOXYL [Suspect]
     Active Substance: LEVOTHYROXINE SODIUM
     Dosage: 75 UG

REACTIONS (7)
  - Bradykinesia [Unknown]
  - Drug ineffective [Unknown]
  - Gait disturbance [Unknown]
  - Confusional state [Unknown]
  - Feeling abnormal [Unknown]
  - Fatigue [Unknown]
  - Joint range of motion decreased [Unknown]
